FAERS Safety Report 21586187 (Version 1)
Quarter: 2022Q4

REPORT INFORMATION
  Report Type: Spontaneous
  Country: US (occurrence: US)
  Receive Date: 20221112
  Receipt Date: 20221112
  Transmission Date: 20230113
  Serious: No
  Sender: FDA-Public Use
  Company Number: US-PADAGIS-2022PAD00881

PATIENT

DRUGS (1)
  1. ESTRADIOL [Suspect]
     Active Substance: ESTRADIOL
     Indication: Oestrogen replacement therapy
     Dosage: USED 2 GRAMS, THE NEXT NIGHT SHE USED 1 GRAM
     Route: 067

REACTIONS (4)
  - Uterine spasm [Unknown]
  - Tenderness [Unknown]
  - Vulvovaginal discomfort [Unknown]
  - Incorrect dosage administered [Unknown]

NARRATIVE: CASE EVENT DATE: 20221018
